FAERS Safety Report 24391796 (Version 2)
Quarter: 2024Q4

REPORT INFORMATION
  Report Type: Report from Study
  Country: TH (occurrence: TH)
  Receive Date: 20241003
  Receipt Date: 20241008
  Transmission Date: 20250114
  Serious: Yes (Death, Life-Threatening, Other)
  Sender: ULTRAGENYX PHARMACEUTICAL
  Company Number: TH-ULTRAGENYX PHARMACEUTICAL INC.-TH-UGX-24-01834

PATIENT
  Age: 1 Year
  Sex: Male

DRUGS (1)
  1. TRIHEPTANOIN [Suspect]
     Active Substance: TRIHEPTANOIN
     Indication: Carnitine-acylcarnitine translocase deficiency
     Dosage: UNK
     Dates: start: 20231105, end: 20240917

REACTIONS (14)
  - Pneumonia [Fatal]
  - Respiratory failure [Fatal]
  - Post procedural complication [Unknown]
  - Haemothorax [Unknown]
  - Acute hepatic failure [Unknown]
  - Coagulopathy [Unknown]
  - Shock [Unknown]
  - Haemodynamic instability [Unknown]
  - Encephalopathy [Unknown]
  - Seizure [Unknown]
  - Upper respiratory tract infection [Unknown]
  - Hypoglycaemia [Unknown]
  - Hyperammonaemia [Unknown]
  - Brain hypoxia [Unknown]
